FAERS Safety Report 25321222 (Version 4)
Quarter: 2025Q3

REPORT INFORMATION
  Report Type: Report from Study
  Country: US (occurrence: US)
  Receive Date: 20250515
  Receipt Date: 20250728
  Transmission Date: 20251021
  Serious: No
  Sender: SUNOVION
  Company Number: US-SMPA-2025SPA005486AA

PATIENT

DRUGS (18)
  1. ORGOVYX [Suspect]
     Active Substance: RELUGOLIX
     Indication: Prostate cancer
     Dosage: 360 MG, SINGLE
     Route: 048
     Dates: start: 20250424, end: 20250424
  2. ORGOVYX [Suspect]
     Active Substance: RELUGOLIX
     Dosage: 120 MG, QD
     Route: 048
     Dates: start: 20250425
  3. ALBUTEROL SULFATE [Concomitant]
     Active Substance: ALBUTEROL SULFATE
     Route: 055
  4. ATORVASTATIN [Concomitant]
     Active Substance: ATORVASTATIN
     Route: 048
  5. ELIQUIS [Concomitant]
     Active Substance: APIXABAN
     Route: 048
  6. ENALAPRIL [Concomitant]
     Active Substance: ENALAPRIL
     Route: 048
  7. METFORMIN [Concomitant]
     Active Substance: METFORMIN HYDROCHLORIDE
     Route: 048
  8. NOVOLIN R [Concomitant]
     Active Substance: INSULIN HUMAN
     Route: 065
  9. NUBEQA [Concomitant]
     Active Substance: DAROLUTAMIDE
     Indication: Prostate cancer
     Dosage: 600 MG, BID
     Route: 065
     Dates: start: 20250424
  10. PLAVIX [Concomitant]
     Active Substance: CLOPIDOGREL BISULFATE
     Route: 048
  11. VITAMINS [Concomitant]
     Active Substance: VITAMINS
     Route: 048
  12. SILDENAFIL [Concomitant]
     Active Substance: SILDENAFIL
     Route: 048
  13. TADALAFIL [Concomitant]
     Active Substance: TADALAFIL
     Route: 048
  14. ZAFIRLUKAST [Concomitant]
     Active Substance: ZAFIRLUKAST
     Route: 048
  15. ZANTAC [Concomitant]
     Active Substance: RANITIDINE HYDROCHLORIDE
     Route: 048
  16. METOPROLOL TARTRATE [Concomitant]
     Active Substance: METOPROLOL TARTRATE
     Route: 048
  17. IRON [Concomitant]
     Active Substance: IRON
     Route: 048
  18. RYBELSUS [Concomitant]
     Active Substance: SEMAGLUTIDE
     Route: 065

REACTIONS (11)
  - Pain [Unknown]
  - Muscular weakness [Unknown]
  - Emotional disorder [Unknown]
  - Nightmare [Unknown]
  - Pollakiuria [Unknown]
  - Hot flush [Unknown]
  - Fatigue [Unknown]
  - Insomnia [Unknown]
  - Depression [Unknown]
  - Constipation [Unknown]
  - Pain in extremity [Unknown]
